FAERS Safety Report 7399516-8 (Version None)
Quarter: 2011Q2

REPORT INFORMATION
  Report Type: 
  Country: None (occurrence: None)
  Receive Date: 20110407
  Receipt Date: 20110328
  Transmission Date: 20111010
  Serious: Yes (Other)
  Sender: FDA-Public Use
  Company Number: US-ELI_LILLY_AND_COMPANY-US201102004628

PATIENT
  Sex: Female
  Weight: 57.596 kg

DRUGS (4)
  1. FORTEO [Suspect]
     Indication: OSTEOPOROSIS
     Dosage: 20 UG, QD
     Dates: start: 20090901, end: 20100902
  2. TRAZODONE [Concomitant]
  3. CALCIUM W/VITAMIN D NOS [Concomitant]
     Dosage: 600 MG, QID
  4. VITAMIN D [Concomitant]
     Dosage: 400 IU, QID

REACTIONS (2)
  - HYPERCALCAEMIA [None]
  - BLOOD PARATHYROID HORMONE ABNORMAL [None]
